FAERS Safety Report 15477512 (Version 2)
Quarter: 2018Q4

REPORT INFORMATION
  Report Type: Other
  Country: FR (occurrence: FR)
  Receive Date: 20181009
  Receipt Date: 20181018
  Transmission Date: 20190205
  Serious: Yes (Death, Life-Threatening, Hospitalization)
  Sender: FDA-Public Use
  Company Number: FR-PROVELL PHARMACEUTICALS-2055813

PATIENT
  Age: 38 Year
  Sex: Male

DRUGS (8)
  1. SUXAMETHONIUM [Suspect]
     Active Substance: SUCCINYLCHOLINE
     Dates: start: 201606, end: 201606
  2. CEFTRIAXONE. [Concomitant]
     Active Substance: CEFTRIAXONE
  3. MIDAZOLAM [Concomitant]
     Active Substance: MIDAZOLAM HYDROCHLORIDE
  4. EUTHYROX [Suspect]
     Active Substance: LEVOTHYROXINE SODIUM
     Indication: THYROID DISORDER
  5. SUFENTANIL [Concomitant]
     Active Substance: SUFENTANIL
  6. EPINEPHRINE. [Suspect]
     Active Substance: EPINEPHRINE
     Dates: start: 201606, end: 201606
  7. ETOMIDATE HCL [Concomitant]
  8. NORADRENALINE ACID TARTRATE ANHYDROUS [Suspect]
     Active Substance: NOREPINEPHRINE BITARTRATE
     Dates: start: 201606, end: 201606

REACTIONS (15)
  - Shock [Fatal]
  - Hyperkalaemia [Fatal]
  - Multiple organ dysfunction syndrome [Fatal]
  - Metabolic acidosis [Fatal]
  - Acute kidney injury [Fatal]
  - Disseminated intravascular coagulation [Fatal]
  - Lactic acidosis [Fatal]
  - Electrocardiogram ST segment elevation [Fatal]
  - Heat stroke [Fatal]
  - Nervous system disorder [Fatal]
  - Rhabdomyolysis [Fatal]
  - Circulatory collapse [Fatal]
  - Supraventricular tachycardia [Fatal]
  - Respiratory failure [Fatal]
  - Cardio-respiratory arrest [Fatal]

NARRATIVE: CASE EVENT DATE: 201606
